FAERS Safety Report 7234189-6 (Version None)
Quarter: 2011Q1

REPORT INFORMATION
  Report Type: 
  Country: None (occurrence: None)
  Receive Date: 20110119
  Receipt Date: 20110112
  Transmission Date: 20110831
  Serious: Yes (Hospitalization)
  Sender: FDA-Public Use
  Company Number: DE-JNJFOC-20091200160

PATIENT
  Sex: Female
  Weight: 92 kg

DRUGS (4)
  1. MESALAZIN [Concomitant]
     Indication: COLITIS ULCERATIVE
     Route: 048
  2. LEVOTHYROXINE SODIUM [Concomitant]
     Indication: HYPOTHYROIDISM
     Route: 048
  3. LOPERAMIDE [Concomitant]
     Indication: COLITIS ULCERATIVE
     Route: 048
  4. REMICADE [Suspect]
     Indication: COLITIS ULCERATIVE
     Route: 042
     Dates: start: 20090319, end: 20090428

REACTIONS (2)
  - COLITIS ULCERATIVE [None]
  - PROCTOCOLECTOMY [None]
